FAERS Safety Report 7210254-4 (Version None)
Quarter: 2011Q1

REPORT INFORMATION
  Report Type: 
  Country: None (occurrence: None)
  Receive Date: 20110105
  Receipt Date: 20101222
  Transmission Date: 20110831
  Serious: Yes (Life-Threatening, Hospitalization, Other)
  Sender: FDA-Public Use
  Company Number: GB-PURDUE-USA-2010-0045954

PATIENT
  Age: 75 Year
  Sex: Female

DRUGS (12)
  1. REVLIMID [Suspect]
     Indication: MULTIPLE MYELOMA
     Dosage: UNK MG, BID
     Route: 048
     Dates: start: 20100630, end: 20100715
  2. FRAGMIN                            /01708302/ [Concomitant]
     Indication: PRODUCT USED FOR UNKNOWN INDICATION
     Dosage: 5000 IU, QD PRN
     Route: 058
  3. COTRIM [Concomitant]
     Indication: PNEUMOCYSTIS JIROVECI PNEUMONIA
     Route: 048
  4. TRAMADOL (SIMILAR TO NDA 21-745) [Suspect]
     Indication: PAIN
     Dosage: 100 MG, QID
     Route: 048
  5. BENDROFLUMETHIAZIDE [Suspect]
     Indication: HYPERTENSION
     Dosage: 2.5 MG, UNK
     Route: 048
  6. ALLOPURINOL [Concomitant]
     Indication: GOUT
     Dosage: UNK
     Route: 048
  7. COTRIM [Concomitant]
     Indication: PROPHYLAXIS
  8. ALLOPURINOL [Suspect]
     Indication: PROPHYLAXIS
     Dosage: 300 MG, QD PRN
     Route: 048
  9. ALLOPURINOL [Suspect]
  10. RANITIDINE [Concomitant]
     Indication: PRODUCT USED FOR UNKNOWN INDICATION
     Dosage: 150 MG, BID
     Route: 048
  11. ACYCLOVIR [Concomitant]
     Indication: ANTIVIRAL PROPHYLAXIS
     Dosage: 400 MG, BID
     Route: 048
     Dates: start: 20100630, end: 20100715
  12. DEXAMETHASONE [Concomitant]
     Indication: MULTIPLE MYELOMA
     Dosage: 20 MG, QD PRN
     Route: 048
     Dates: start: 20100630, end: 20100703

REACTIONS (2)
  - DRUG INTERACTION [None]
  - INAPPROPRIATE ANTIDIURETIC HORMONE SECRETION [None]
